FAERS Safety Report 12170792 (Version 1)
Quarter: 2016Q1

REPORT INFORMATION
  Report Type: Spontaneous
  Country: DE (occurrence: DE)
  Receive Date: 20160311
  Receipt Date: 20160311
  Transmission Date: 20160526
  Serious: Yes (Hospitalization, Other)
  Sender: FDA-Public Use
  Company Number: DE-TEVA-639749GER

PATIENT
  Age: 77 Year
  Sex: Female

DRUGS (9)
  1. PHENPROGAMMA [Concomitant]
     Active Substance: PHENPROCOUMON
  2. ALDACTONE [Concomitant]
     Active Substance: SPIRONOLACTONE
  3. AQUAPHOR [Concomitant]
     Active Substance: PETROLATUM
  4. AMIODARONE [Suspect]
     Active Substance: AMIODARONE
     Indication: VENTRICULAR TACHYCARDIA
     Dates: start: 2008, end: 2015
  5. TORASEMID [Concomitant]
     Active Substance: TORSEMIDE
  6. CANDESARTAN [Concomitant]
     Active Substance: CANDESARTAN
  7. L-THYROXIN [Concomitant]
     Active Substance: LEVOTHYROXINE SODIUM
  8. ASPIRIN. [Concomitant]
     Active Substance: ASPIRIN
  9. METOPROLOL. [Concomitant]
     Active Substance: METOPROLOL

REACTIONS (4)
  - Pulmonary eosinophilia [Recovering/Resolving]
  - Type I hypersensitivity [Recovering/Resolving]
  - Eosinophilia [Recovering/Resolving]
  - Interstitial lung disease [Recovering/Resolving]

NARRATIVE: CASE EVENT DATE: 201511
